FAERS Safety Report 5485164-3 (Version None)
Quarter: 2007Q4

REPORT INFORMATION
  Report Type: 
  Country: None (occurrence: None)
  Receive Date: 20071015
  Receipt Date: 20071009
  Transmission Date: 20080405
  Serious: Yes (Other)
  Sender: FDA-Public Use
  Company Number: PHNU2006DE03208

PATIENT
  Sex: Female
  Weight: 58 kg

DRUGS (4)
  1. ZOMETA [Suspect]
     Dosage: 4 MG, QMO
     Dates: start: 20060620
  2. FEMARA [Suspect]
     Indication: BREAST CANCER FEMALE
     Dosage: 2.5 MG/DAY
     Route: 048
     Dates: start: 20060509, end: 20070705
  3. TRAMADOL HCL [Concomitant]
     Route: 065
     Dates: start: 20060412
  4. NOVALGIN [Concomitant]
     Route: 065
     Dates: start: 20060412

REACTIONS (6)
  - DUODENITIS [None]
  - ENDOSCOPY SMALL INTESTINE [None]
  - MALIGNANT NEOPLASM OF PLEURA [None]
  - MALIGNANT NEOPLASM PROGRESSION [None]
  - METASTASES TO LIVER [None]
  - METASTASES TO LUNG [None]
